FAERS Safety Report 5766401-4 (Version None)
Quarter: 2008Q2

REPORT INFORMATION
  Report Type: 
  Country: None (occurrence: None)
  Receive Date: 20080611
  Receipt Date: 20080604
  Transmission Date: 20081010
  Serious: Yes (Other)
  Sender: FDA-Public Use
  Company Number: US-BOEHRINGER INGELHEIM GMBH, GERMANY-2008-BP-06350BP

PATIENT
  Age: 71 Year
  Sex: Male

DRUGS (1)
  1. MIRAPEX [Suspect]

REACTIONS (1)
  - CEREBROVASCULAR ACCIDENT [None]
